FAERS Safety Report 5477515-0 (Version None)
Quarter: 2007Q4

REPORT INFORMATION
  Report Type: 
  Country: None (occurrence: None)
  Receive Date: 20071001
  Receipt Date: 20070919
  Transmission Date: 20080405
  Serious: Yes (Hospitalization)
  Sender: FDA-Public Use
  Company Number: GXKR2007MK08221

PATIENT
  Age: 17 Year
  Sex: Male

DRUGS (2)
  1. CEFTRIAXONE [Suspect]
     Indication: TOOTH INFECTION
     Dosage: 1 G, UNK, INTRAVENOUS
     Route: 042
     Dates: start: 20070910, end: 20070910
  2. DOXYCYCLINE [Concomitant]

REACTIONS (4)
  - ASPHYXIA [None]
  - HYPOTENSION [None]
  - TACHYCARDIA [None]
  - TRISMUS [None]
